FAERS Safety Report 24195203 (Version 1)
Quarter: 2024Q3

REPORT INFORMATION
  Report Type: Spontaneous
  Country: JP (occurrence: JP)
  Receive Date: 20240809
  Receipt Date: 20240809
  Transmission Date: 20241017
  Serious: Yes (Hospitalization)
  Sender: REGENERON
  Company Number: JP-ULTRAGENYX PHARMACEUTICAL INC.-JP-UGX-24-01477

PATIENT

DRUGS (1)
  1. EVKEEZA [Suspect]
     Active Substance: EVINACUMAB-DGNB
     Indication: Type IIa hyperlipidaemia
     Dosage: UNK, UNK
     Route: 065

REACTIONS (1)
  - Hospitalisation [Unknown]
